FAERS Safety Report 6992332-8 (Version None)
Quarter: 2010Q3

REPORT INFORMATION
  Report Type: 
  Country: None (occurrence: None)
  Receive Date: 20100915
  Receipt Date: 20100906
  Transmission Date: 20110219
  Serious: Yes (Congenital Anomaly)
  Sender: FDA-Public Use
  Company Number: GER/GER/10/0015690

PATIENT

DRUGS (2)
  1. VALPROIC ACID [Suspect]
     Indication: BIPOLAR DISORDER
     Dosage: 600 MG, TRANSPLACENTAL
     Route: 064
     Dates: start: 20100101
  2. SEROQUEL [Suspect]
     Indication: BIPOLAR DISORDER
     Dosage: 200 MG, TRANSPLACENTAL
     Route: 064
     Dates: start: 20100101

REACTIONS (2)
  - CLEFT LIP AND PALATE [None]
  - MATERNAL DRUGS AFFECTING FOETUS [None]
